FAERS Safety Report 21497539 (Version 4)
Quarter: 2022Q4

REPORT INFORMATION
  Report Type: Report from Study
  Country: IT (occurrence: IT)
  Receive Date: 20221024
  Receipt Date: 20221121
  Transmission Date: 20230112
  Serious: Yes (Life-Threatening, Hospitalization, Other)
  Sender: FDA-Public Use
  Company Number: IT-BRISTOL-MYERS SQUIBB COMPANY-2022-072121

PATIENT
  Age: 61 Year
  Sex: Female

DRUGS (29)
  1. POMALIDOMIDE [Suspect]
     Active Substance: POMALIDOMIDE
     Indication: Plasma cell myeloma refractory
     Dosage: 4 MG DAY 1-21 OF 28 DAY CYCLE
     Route: 048
     Dates: start: 20210920, end: 20211003
  2. POMALIDOMIDE [Suspect]
     Active Substance: POMALIDOMIDE
     Dosage: DAY 1-21 OF 28 DAY CYCLE
     Route: 048
     Dates: start: 20211018, end: 20211031
  3. POMALIDOMIDE [Suspect]
     Active Substance: POMALIDOMIDE
     Dosage: DAY 1-21 OF 28 DAY CYCLE
     Route: 048
     Dates: start: 20220613, end: 20220620
  4. POMALIDOMIDE [Suspect]
     Active Substance: POMALIDOMIDE
     Dosage: DAY 1-21 OF 28 DAY CYCLE
     Route: 048
     Dates: start: 20220826
  5. POMALIDOMIDE [Suspect]
     Active Substance: POMALIDOMIDE
     Dosage: DAY 1-21 OF 28 DAY CYCLE
     Route: 048
     Dates: start: 20220916, end: 20220923
  6. DEXAMETHASONE [Suspect]
     Active Substance: DEXAMETHASONE
     Indication: Plasma cell myeloma refractory
     Dosage: 20 MG DAY 1, 8, 15 AND 22 OF 28 DAY CYCLE
     Route: 048
     Dates: start: 20210920, end: 20211001
  7. DEXAMETHASONE [Suspect]
     Active Substance: DEXAMETHASONE
     Indication: Prophylaxis
     Dosage: 1, 8, 15 AND 22 OF 28 DAY CYCLE
     Route: 048
     Dates: start: 20211018, end: 20211029
  8. DEXAMETHASONE [Suspect]
     Active Substance: DEXAMETHASONE
     Dosage: 1, 8, 15 AND 22 OF 28 DAY CYCLE
     Route: 048
     Dates: start: 20220613, end: 20220621
  9. DEXAMETHASONE [Suspect]
     Active Substance: DEXAMETHASONE
     Dosage: 1, 8, 15 AND 22 OF 28 DAY CYCLE
     Route: 048
     Dates: start: 20220826
  10. DEXAMETHASONE [Suspect]
     Active Substance: DEXAMETHASONE
     Dosage: DAY 1,2
     Route: 048
     Dates: start: 20220916, end: 20220917
  11. BORTEZOMIB [Suspect]
     Active Substance: BORTEZOMIB
     Indication: Plasma cell myeloma refractory
     Dosage: 1.3 MG/M2, DAY 1,4 8 AND 13 OF 21 DAY CYC
     Route: 058
     Dates: start: 20210920, end: 20210930
  12. BORTEZOMIB [Suspect]
     Active Substance: BORTEZOMIB
     Route: 058
     Dates: start: 20211018, end: 20211028
  13. BORTEZOMIB [Suspect]
     Active Substance: BORTEZOMIB
     Route: 058
     Dates: start: 20220613, end: 20220620
  14. BORTEZOMIB [Suspect]
     Active Substance: BORTEZOMIB
     Route: 058
     Dates: start: 20220826
  15. BORTEZOMIB [Suspect]
     Active Substance: BORTEZOMIB
     Dosage: CYC, DAY 1,8
     Route: 058
     Dates: start: 20220916, end: 20220923
  16. HYDROXYZINE HYDROCHLORIDE [Concomitant]
     Active Substance: HYDROXYZINE HYDROCHLORIDE
     Indication: Product used for unknown indication
     Route: 065
  17. LEVOFLOXACIN [Concomitant]
     Active Substance: LEVOFLOXACIN
     Indication: Product used for unknown indication
     Dates: start: 20220405
  18. GABAPENTIN [Concomitant]
     Active Substance: GABAPENTIN
     Indication: Product used for unknown indication
     Dates: start: 20121030
  19. NADROPARIN CALCIUM [Concomitant]
     Active Substance: NADROPARIN CALCIUM
     Indication: Product used for unknown indication
     Dates: start: 20210920
  20. GRANULOCYTE COLONY-STIMULATING FACTOR NOS [Concomitant]
     Active Substance: GRANULOCYTE COLONY-STIMULATING FACTOR NOS
     Indication: Product used for unknown indication
     Dates: start: 20211012
  21. ASPIRIN [Concomitant]
     Active Substance: ASPIRIN
     Indication: Product used for unknown indication
     Dates: start: 20170614
  22. ACYCLOVIR [Concomitant]
     Active Substance: ACYCLOVIR
     Indication: Product used for unknown indication
     Dates: start: 20060912
  23. CYMBALTA [Concomitant]
     Active Substance: DULOXETINE HYDROCHLORIDE
     Indication: Product used for unknown indication
     Dates: start: 20151104
  24. BISOPROLOL [Concomitant]
     Active Substance: BISOPROLOL
     Indication: Product used for unknown indication
     Dates: start: 20200928
  25. FOLIC ACID [Concomitant]
     Active Substance: FOLIC ACID
     Indication: Product used for unknown indication
     Dates: start: 20200928
  26. OXYGEN [Concomitant]
     Active Substance: OXYGEN
     Indication: Product used for unknown indication
     Dosage: OXYGEN THERAPY
     Dates: start: 20220628, end: 20220708
  27. OMEGA 3 [Concomitant]
     Active Substance: CAPSAICIN
     Indication: Product used for unknown indication
     Dates: start: 20170202
  28. ESOMEPRAZOLE [Concomitant]
     Active Substance: ESOMEPRAZOLE
     Indication: Product used for unknown indication
     Dates: start: 20130423
  29. NALOXONE HYDROCHLORIDE\OXYCODONE HYDROCHLORIDE [Concomitant]
     Active Substance: NALOXONE HYDROCHLORIDE\OXYCODONE HYDROCHLORIDE
     Indication: Product used for unknown indication
     Dates: start: 20220823

REACTIONS (1)
  - Interstitial lung disease [Recovered/Resolved]

NARRATIVE: CASE EVENT DATE: 20220629
